FAERS Safety Report 11791069 (Version 1)
Quarter: 2015Q4

REPORT INFORMATION
  Report Type: Spontaneous
  Country: US (occurrence: US)
  Receive Date: 20151201
  Receipt Date: 20151201
  Transmission Date: 20160305
  Serious: No
  Sender: FDA-Public Use
  Company Number: US-GLAXOSMITHKLINE-US2015170328

PATIENT
  Age: 35 Year
  Sex: Female

DRUGS (1)
  1. NICODERM CQ [Suspect]
     Active Substance: NICOTINE
     Indication: SMOKING CESSATION THERAPY
     Dosage: 21 MG, UNK
     Dates: start: 20151024, end: 201511

REACTIONS (8)
  - Nausea [Not Recovered/Not Resolved]
  - Pain in extremity [Recovered/Resolved]
  - Overdose [Unknown]
  - Feeling abnormal [Recovered/Resolved]
  - Abnormal dreams [Recovered/Resolved]
  - Condition aggravated [Not Recovered/Not Resolved]
  - Insomnia [Recovered/Resolved]
  - Vomiting [Recovered/Resolved]

NARRATIVE: CASE EVENT DATE: 201511
